FAERS Safety Report 19034804 (Version 1)
Quarter: 2021Q1

REPORT INFORMATION
  Report Type: Other
  Country: GB (occurrence: GB)
  Receive Date: 20210320
  Receipt Date: 20210320
  Transmission Date: 20210420
  Serious: Yes (Disabling)
  Sender: FDA-Public Use
  Company Number: GB-MACLEODS PHARMA UK LTD-MAC2021030474

PATIENT

DRUGS (3)
  1. DARIFENACIN 7.5 MG [Suspect]
     Active Substance: DARIFENACIN
     Indication: POLLAKIURIA
     Dosage: 7.5 MILLIGRAM, BID
     Route: 048
     Dates: start: 20201113, end: 20210108
  2. DARIFENACIN 7.5 MG [Suspect]
     Active Substance: DARIFENACIN
     Indication: MICTURITION URGENCY
  3. IRBESARTAN. [Suspect]
     Active Substance: IRBESARTAN
     Indication: HYPERTENSION
     Dosage: 150 MILLIGRAM, QD
     Route: 048

REACTIONS (9)
  - Fatigue [Not Recovered/Not Resolved]
  - Arthralgia [Not Recovered/Not Resolved]
  - Insomnia [Not Recovered/Not Resolved]
  - Adverse drug reaction [Not Recovered/Not Resolved]
  - Back pain [Not Recovered/Not Resolved]
  - Oedema [Not Recovered/Not Resolved]
  - Mouth ulceration [Not Recovered/Not Resolved]
  - Urinary retention [Not Recovered/Not Resolved]
  - Dyspnoea [Not Recovered/Not Resolved]

NARRATIVE: CASE EVENT DATE: 20201216
